FAERS Safety Report 7852325-5 (Version None)
Quarter: 2011Q4

REPORT INFORMATION
  Report Type: 
  Country: None (occurrence: None)
  Receive Date: 20111026
  Receipt Date: 20111017
  Transmission Date: 20120403
  Serious: Yes (Other)
  Sender: FDA-Public Use
  Company Number: FR-US-EMD SERONO, INC.-7090363

PATIENT
  Age: 33 Year
  Sex: Male

DRUGS (3)
  1. CYTARABINE [Suspect]
     Indication: LEUKAEMIA
     Route: 042
     Dates: start: 20100701, end: 20100705
  2. NOVANTRONE [Suspect]
     Indication: ACUTE MYELOID LEUKAEMIA
     Route: 042
     Dates: start: 20100701
  3. GEMTUZUMAB OZOGAMICIN [Suspect]
     Indication: ACUTE LEUKAEMIA
     Route: 042
     Dates: start: 20100704

REACTIONS (3)
  - HYPERTHERMIA [None]
  - VOMITING [None]
  - CHILLS [None]
